FAERS Safety Report 6332948-5 (Version None)
Quarter: 2009Q3

REPORT INFORMATION
  Report Type: 
  Country: None (occurrence: None)
  Receive Date: 20090828
  Receipt Date: 20090817
  Transmission Date: 20100115
  Serious: Yes (Other)
  Sender: FDA-Public Use
  Company Number: PHEH2009US08667

PATIENT
  Sex: Male
  Weight: 82.993 kg

DRUGS (10)
  1. EXJADE [Suspect]
     Indication: MYELODYSPLASTIC SYNDROME
     Dosage: 1500 MG/DAY
     Route: 048
     Dates: start: 20090716, end: 20090731
  2. EXJADE [Suspect]
     Indication: IRON OVERLOAD
  3. OXYCODONE HCL AND ACETAMINOPHEN [Concomitant]
  4. TEMAZEPAM [Concomitant]
  5. PROCHLORPERAZINE [Concomitant]
  6. CITRUCEL [Concomitant]
  7. FLOMAX [Concomitant]
     Dosage: 0.4 MG, QD
     Route: 048
  8. XANAX [Concomitant]
     Dosage: 2 MG, QHS
     Route: 048
  9. ARANESP [Concomitant]
     Indication: ANAEMIA
     Dosage: 200 MCG SUB Q
  10. VIDAZA [Concomitant]
     Indication: MYELODYSPLASTIC SYNDROME
     Dosage: 150 MG X 7 DAYS MONTHLY

REACTIONS (4)
  - DRY MOUTH [None]
  - RASH [None]
  - RASH ERYTHEMATOUS [None]
  - SKIN EXFOLIATION [None]
